FAERS Safety Report 4591822-5 (Version None)
Quarter: 2005Q1

REPORT INFORMATION
  Report Type: 
  Country: None (occurrence: None)
  Receive Date: 20050125
  Receipt Date: 20040817
  Transmission Date: 20050727
  Serious: No
  Sender: FDA-Public Use
  Company Number: USA040875782

PATIENT
  Age: 78 Year
  Sex: Female
  Weight: 66 kg

DRUGS (2)
  1. FORTEO [Suspect]
     Indication: OSTEOPOROSIS
     Dosage: 20 UG/1 DAY
     Dates: start: 20040805
  2. CALCIUM WITH VITAMIN D [Concomitant]

REACTIONS (3)
  - BONE PAIN [None]
  - CHEST PAIN [None]
  - MUSCLE SPASMS [None]
